FAERS Safety Report 20647736 (Version 1)
Quarter: 2022Q1

REPORT INFORMATION
  Report Type: Spontaneous
  Country: EG (occurrence: EG)
  Receive Date: 20220329
  Receipt Date: 20220329
  Transmission Date: 20220424
  Serious: Yes (Death, Life-Threatening, Hospitalization, Other)
  Sender: FDA-Public Use
  Company Number: EG-MYLANLABS-2022M1022361

PATIENT
  Age: 9 Year
  Sex: Male

DRUGS (4)
  1. METHOTREXATE SODIUM [Suspect]
     Active Substance: METHOTREXATE SODIUM
     Indication: Leukaemia
     Dosage: 0.5 MILLILITER (12 MG)
     Route: 037
     Dates: start: 20220214
  2. METHOTREXATE [Suspect]
     Active Substance: METHOTREXATE
     Indication: Leukaemia
     Dosage: UNK, A DOSE OF 2.5 GM /M2
     Route: 042
     Dates: start: 20220214, end: 20220215
  3. LEUCOVORIN [Suspect]
     Active Substance: LEUCOVORIN
     Indication: Product used for unknown indication
     Dosage: UNK, DOSE 5 DOSES EACH OF 6 HRS EACH DOSE
  4. SODIUM BICARBONATE [Concomitant]
     Active Substance: SODIUM BICARBONATE
     Dosage: UNK, 1 MEQ/1ML
     Route: 042

REACTIONS (5)
  - Brain injury [Fatal]
  - Seizure [Unknown]
  - Cardiac arrest [Unknown]
  - Mouth ulceration [Unknown]
  - Suspected counterfeit product [Unknown]

NARRATIVE: CASE EVENT DATE: 20220222
